FAERS Safety Report 7472241-0 (Version None)
Quarter: 2011Q2

REPORT INFORMATION
  Report Type: 
  Country: None (occurrence: None)
  Receive Date: 20110502
  Receipt Date: 20110405
  Transmission Date: 20111010
  Serious: Yes (Disabling)
  Sender: FDA-Public Use
  Company Number: ALA_01384_2010

PATIENT
  Sex: Female

DRUGS (2)
  1. REGLAN [Suspect]
     Indication: GASTROINTESTINAL DISORDER
     Dosage: (10 MG QID ORAL), (10 MG ORAL)
     Route: 048
     Dates: start: 20070809, end: 20100120
  2. REGLAN [Suspect]
     Indication: GASTROINTESTINAL DISORDER
     Dosage: (10 MG QID ORAL), (10 MG ORAL)
     Route: 048
     Dates: start: 20090201, end: 20091201

REACTIONS (8)
  - DEFORMITY [None]
  - RESTLESS LEGS SYNDROME [None]
  - MULTIPLE INJURIES [None]
  - ECONOMIC PROBLEM [None]
  - ACTIVITIES OF DAILY LIVING IMPAIRED [None]
  - EMOTIONAL DISORDER [None]
  - PAIN [None]
  - MENTAL DISORDER [None]
